FAERS Safety Report 13638991 (Version 1)
Quarter: 2017Q2

REPORT INFORMATION
  Report Type: Spontaneous
  Country: US (occurrence: US)
  Receive Date: 20170609
  Receipt Date: 20170609
  Transmission Date: 20170830
  Serious: Yes (Hospitalization, Other)
  Sender: FDA-Public Use
  Company Number: US-MYLANLABS-2017M1034596

PATIENT

DRUGS (5)
  1. MESNA. [Concomitant]
     Active Substance: MESNA
     Indication: PRODUCT USED FOR UNKNOWN INDICATION
     Route: 065
  2. PACLITAXEL. [Suspect]
     Active Substance: PACLITAXEL
     Indication: TESTICULAR CANCER METASTATIC
     Dosage: 250 MG/M2 OVER 24 HOURS ON DAY 1; EVERY 14 DAYS
     Route: 042
  3. CARBOPLATIN. [Suspect]
     Active Substance: CARBOPLATIN
     Indication: TESTICULAR CANCER METASTATIC
     Dosage: AUC=8; EVERY 21 DAYS
     Route: 042
  4. ETOPOSIDE. [Suspect]
     Active Substance: ETOPOSIDE
     Indication: TESTICULAR CANCER METASTATIC
     Dosage: 400 MG/M2; EVERY 21 DAYS
     Route: 042
  5. IFOSFAMIDE. [Suspect]
     Active Substance: IFOSFAMIDE
     Indication: TESTICULAR CANCER METASTATIC
     Dosage: 2000 MG/M2 ON DAY 2-4; EVERY 14 DAYS
     Route: 042

REACTIONS (7)
  - Septic shock [Recovered/Resolved]
  - Febrile neutropenia [Recovered/Resolved]
  - Clostridium difficile infection [Recovering/Resolving]
  - Rhabdomyolysis [Recovered/Resolved]
  - Sepsis [Recovered/Resolved]
  - Streptococcal bacteraemia [Recovered/Resolved]
  - Hypotension [Recovered/Resolved]
